FAERS Safety Report 6383822-X (Version None)
Quarter: 2009Q3

REPORT INFORMATION
  Report Type: 
  Country: None (occurrence: None)
  Receive Date: 20090929
  Receipt Date: 20090929
  Transmission Date: 20100115
  Serious: Yes (Hospitalization)
  Sender: FDA-Public Use
  Company Number: None

PATIENT
  Sex: Male
  Weight: 75 kg

DRUGS (3)
  1. EXJADE [Suspect]
     Indication: IRON OVERLOAD
     Dosage: 1500MG 3 X / WEEK PO; 1000MG 4 X / WEEK PO
     Route: 048
     Dates: start: 20060209
  2. EXJADE [Suspect]
     Indication: THALASSAEMIA
     Dosage: 1500MG 3 X / WEEK PO; 1000MG 4 X / WEEK PO
     Route: 048
     Dates: start: 20060209
  3. DEFERISIROX [Concomitant]

REACTIONS (1)
  - DUODENAL ULCER PERFORATION [None]
